FAERS Safety Report 5779497-0 (Version None)
Quarter: 2008Q2

REPORT INFORMATION
  Report Type: 
  Country: None (occurrence: None)
  Receive Date: 20080619
  Receipt Date: 20080610
  Transmission Date: 20081010
  Serious: Yes (Hospitalization, Other)
  Sender: FDA-Public Use
  Company Number: US-ELI_LILLY_AND_COMPANY-US200806002285

PATIENT
  Age: 52 Year
  Sex: Female

DRUGS (2)
  1. EVISTA [Suspect]
     Indication: PROPHYLAXIS
     Dosage: 60 MG, DAILY (1/D)
     Dates: start: 20060601
  2. ANTIHYPERTENSIVES [Concomitant]
     Indication: HYPERTENSION

REACTIONS (1)
  - THYROID CANCER [None]
